FAERS Safety Report 8292389-0 (Version None)
Quarter: 2012Q2

REPORT INFORMATION
  Report Type: 
  Country: None (occurrence: None)
  Receive Date: 20120417
  Receipt Date: 20120403
  Transmission Date: 20120825
  Serious: Yes (Other)
  Sender: FDA-Public Use
  Company Number: GB-WATSON-2012-06558

PATIENT
  Age: 83 Year
  Sex: Male

DRUGS (10)
  1. SIMVASTATIN [Concomitant]
     Indication: PRODUCT USED FOR UNKNOWN INDICATION
     Dosage: 40 MG, DAILY, TAKEN AT NIGHT
     Route: 048
  2. FORTISIP [Concomitant]
     Indication: PRODUCT USED FOR UNKNOWN INDICATION
  3. PHENYTOIN [Concomitant]
     Indication: PRODUCT USED FOR UNKNOWN INDICATION
     Dosage: 300 MG, DAILY, TAKEN AT NIGHT
     Route: 048
  4. LEVETIRACETAM [Suspect]
     Dosage: 500 MG, DAILY
     Route: 048
     Dates: start: 20111123
  5. LEVETIRACETAM [Suspect]
     Indication: GRAND MAL CONVULSION
     Dosage: 250 MG, BID
     Route: 048
     Dates: start: 20111020, end: 20111102
  6. SENNA                              /00142201/ [Concomitant]
     Indication: PRODUCT USED FOR UNKNOWN INDICATION
     Dosage: 2 DF, DAILY, TAKEN AT NIGHT
     Route: 048
  7. ENOXAPARIN [Concomitant]
     Indication: THROMBOSIS PROPHYLAXIS
     Dosage: STOPPED WHEN PLATELETS DROPPED
  8. LEVETIRACETAM [Suspect]
     Dosage: 500 MG, BID
     Route: 048
     Dates: start: 20111103, end: 20111122
  9. PHENOBARBITAL TAB [Concomitant]
     Indication: PRODUCT USED FOR UNKNOWN INDICATION
     Dosage: 30 MG, TID, LONG TERM
     Route: 048
  10. LATANOPROST [Concomitant]
     Indication: PRODUCT USED FOR UNKNOWN INDICATION
     Dosage: 1 DF, TAKEN AT NIGHT
     Route: 061

REACTIONS (4)
  - BLOOD SODIUM INCREASED [None]
  - THROMBOCYTOPENIA [None]
  - NEUTROPENIA [None]
  - BLOOD UREA INCREASED [None]
